FAERS Safety Report 26205838 (Version 1)
Quarter: 2025Q4

REPORT INFORMATION
  Report Type: Spontaneous
  Country: US (occurrence: US)
  Receive Date: 20251229
  Receipt Date: 20251229
  Transmission Date: 20260118
  Serious: No
  Sender: CIPLA
  Company Number: US-CIPLA LTD.-2025US16127

PATIENT

DRUGS (4)
  1. ALBUTEROL [Suspect]
     Active Substance: ALBUTEROL
     Indication: Bronchitis
     Dosage: 90 MICROGRAM, BID (BY MOUTH ONE IN THE MORNING AND ONE IN THE EVENING)
     Dates: start: 20251214, end: 202512
  2. FLONASE [Concomitant]
     Active Substance: FLUTICASONE PROPIONATE
     Indication: Bronchitis
     Dosage: UNK, QD  (ONCE IN A DAY AND ONCE IN THE NIGHT BOTH SIDES OF THE NOSE)
     Route: 045
  3. FLONASE [Concomitant]
     Active Substance: FLUTICASONE PROPIONATE
     Indication: Influenza
  4. ZYRTEC [Concomitant]
     Active Substance: CETIRIZINE HYDROCHLORIDE
     Indication: Antiallergic therapy
     Dosage: UNK, BID (TWICE IN A DAY AND DOES NOT EXCEED 3 DOSES IN A DAY)
     Route: 065

REACTIONS (2)
  - Drug dose omission by device [Unknown]
  - Device delivery system issue [Unknown]

NARRATIVE: CASE EVENT DATE: 20251214
